FAERS Safety Report 7806298-1 (Version None)
Quarter: 2011Q4

REPORT INFORMATION
  Report Type: 
  Country: None (occurrence: None)
  Receive Date: 20111006
  Receipt Date: 20111006
  Transmission Date: 20120403
  Serious: No
  Sender: FDA-Public Use
  Company Number: None

PATIENT
  Sex: Female
  Weight: 49.8957 kg

DRUGS (2)
  1. FLUOXETINE [Suspect]
     Indication: AFFECTIVE DISORDER
     Dosage: 20MG QD PO PRIOR TO 2009
     Route: 048
  2. FLUOXETINE [Suspect]
     Indication: DEPRESSION
     Dosage: 20MG QD PO PRIOR TO 2009
     Route: 048

REACTIONS (2)
  - PRODUCT SUBSTITUTION ISSUE [None]
  - DRUG INEFFECTIVE [None]
